FAERS Safety Report 9193715 (Version 8)
Quarter: 2013Q3

REPORT INFORMATION
  Report Type: Spontaneous
  Country: US (occurrence: US)
  Receive Date: 20130327
  Receipt Date: 20130725
  Transmission Date: 20140515
  Serious: Yes (Hospitalization)
  Sender: FDA-Public Use
  Company Number: US-PFIZER INC-2013094447

PATIENT
  Age: 69 Year
  Sex: Female
  Weight: 46.26 kg

DRUGS (9)
  1. SUTENT [Suspect]
     Indication: RENAL CELL CARCINOMA
     Dosage: 37.5 MG, 1X/DAY (CYCLIC)
     Route: 048
     Dates: start: 20130311
  2. FLEXERIL [Concomitant]
     Dosage: UNK
  3. DEXAMETHASONE [Concomitant]
     Dosage: 4 MG, 1X/DAY
  4. SENNA [Concomitant]
     Dosage: UNK
  5. COLACE [Concomitant]
     Dosage: UNK
  6. LEVOTHYROXINE [Concomitant]
     Dosage: UNK
     Dates: start: 20130417
  7. MAGNESIUM [Concomitant]
     Dosage: UNK
     Dates: start: 20130417
  8. LISINOPRIL [Concomitant]
     Indication: HYPERTENSION
     Dosage: 20 MG, AS NEEDED
  9. LOPRESSOR [Concomitant]
     Indication: HYPERTENSION
     Dosage: 25 MG, 2X/DAY

REACTIONS (14)
  - Hypertension [Unknown]
  - Disorientation [Unknown]
  - Convulsion [Unknown]
  - Abdominal discomfort [Unknown]
  - Ecchymosis [Unknown]
  - Hypothyroidism [Unknown]
  - Skin disorder [Unknown]
  - Skin exfoliation [Unknown]
  - Pain of skin [Unknown]
  - Fatigue [Unknown]
  - Glossodynia [Unknown]
  - Petechiae [Unknown]
  - Blood magnesium decreased [Unknown]
  - Fatigue [Unknown]
